FAERS Safety Report 10182925 (Version 2)
Quarter: 2014Q2

REPORT INFORMATION
  Report Type: Spontaneous
  Country: US (occurrence: US)
  Receive Date: 20140520
  Receipt Date: 20140530
  Transmission Date: 20141212
  Serious: No
  Sender: FDA-Public Use
  Company Number: US-PFIZER INC-2014134599

PATIENT
  Sex: Female

DRUGS (2)
  1. NEURONTIN [Suspect]
     Indication: NEURALGIA
     Dosage: 300 MG, 1X/DAY
     Dates: start: 20140510, end: 20140513
  2. NEURONTIN [Suspect]
     Dosage: 300 MG, 2X/DAY
     Dates: start: 20140513

REACTIONS (4)
  - Somnolence [Unknown]
  - Vertigo [Unknown]
  - Disturbance in attention [Unknown]
  - Nausea [Not Recovered/Not Resolved]
